FAERS Safety Report 5037256-0 (Version None)
Quarter: 2006Q2

REPORT INFORMATION
  Report Type: 
  Country: None (occurrence: None)
  Receive Date: 20060628
  Receipt Date: 20050804
  Transmission Date: 20061013
  Serious: Yes (Other)
  Sender: FDA-Public Use
  Company Number: SE-ROCHE-412995

PATIENT
  Age: 36 Year
  Sex: Female

DRUGS (2)
  1. PEGASYS [Suspect]
     Route: 042
     Dates: start: 20041011, end: 20041228
  2. REBETOL [Suspect]
     Route: 048
     Dates: start: 20041011, end: 20050102

REACTIONS (3)
  - ABORTION SPONTANEOUS [None]
  - DRUG EXPOSURE DURING PREGNANCY [None]
  - PREGNANCY [None]
